FAERS Safety Report 8793890 (Version 2)
Quarter: 2012Q4

REPORT INFORMATION
  Report Type: 
  Country: US (occurrence: US)
  Receive Date: 20120918
  Receipt Date: 20121207
  Transmission Date: 20130627
  Serious: No
  Sender: FDA-Public Use
  Company Number: US-009507513-1208USA004260

PATIENT
  Age: 51 Year
  Sex: Female

DRUGS (3)
  1. VICTRELIS [Suspect]
     Dosage: 800 mg, tid
     Dates: start: 201204
  2. PEGINTRON [Suspect]
     Dosage: 120 MCG,qw
     Dates: start: 201204
  3. RIBAPAK [Concomitant]
     Dosage: 600 mg (AM) , 400 mg (PM)

REACTIONS (3)
  - Red blood cell count decreased [Unknown]
  - Asthenia [Unknown]
  - Dysgeusia [Unknown]
